FAERS Safety Report 4647487-7 (Version None)
Quarter: 2005Q3

REPORT INFORMATION
  Report Type: 
  Country: None (occurrence: None)
  Receive Date: 20050428
  Receipt Date: 20050428
  Transmission Date: 20060218
  Serious: No
  Sender: FDA-Public Use
  Company Number: None

PATIENT
  Age: 67 Year
  Sex: Female

DRUGS (21)
  1. OCTREOTIDE [Suspect]
     Dosage: 50 MG/HR INFUSION
     Route: 042
     Dates: start: 20041118, end: 20041120
  2. ATROVENT [Concomitant]
  3. ALBUTEROL [Concomitant]
  4. LIPITOR [Concomitant]
  5. FOLIC ACID [Concomitant]
  6. NORVASC [Concomitant]
  7. NEXIUM [Concomitant]
  8. IMDUR [Concomitant]
  9. ASPIRIN [Concomitant]
  10. PLAVIX [Concomitant]
  11. ALTACE [Concomitant]
  12. TOPROL-XL [Concomitant]
  13. COUMADIN [Concomitant]
  14. SINGULAIR [Concomitant]
  15. LASIX [Concomitant]
  16. POTASSIUM CHLORIDE [Concomitant]
  17. IRON SULFATETHIAMIN COMPOUND TAB [Concomitant]
  18. INSULIN [Concomitant]
  19. ZYTHROMAX [Concomitant]
  20. PROTONIX [Concomitant]
  21. PITRESSIN [Concomitant]

REACTIONS (23)
  - ALANINE AMINOTRANSFERASE INCREASED [None]
  - ANTIBODY TEST POSITIVE [None]
  - ASPARTATE AMINOTRANSFERASE INCREASED [None]
  - ASTHENIA [None]
  - BILIRUBIN CONJUGATED INCREASED [None]
  - BLOOD ALKALINE PHOSPHATASE INCREASED [None]
  - BLOOD BILIRUBIN INCREASED [None]
  - BLOOD LACTATE DEHYDROGENASE INCREASED [None]
  - BLOOD PRESSURE SYSTOLIC INCREASED [None]
  - CARDIAC MURMUR [None]
  - CHOLESTASIS [None]
  - FATIGUE [None]
  - HAEMOLYSIS [None]
  - HAPTOGLOBIN [None]
  - HAPTOGLOBIN DECREASED [None]
  - HEPATIC FAILURE [None]
  - HEPATIC TRAUMA [None]
  - JAUNDICE [None]
  - LYMPHADENOPATHY [None]
  - OCULAR ICTERUS [None]
  - OEDEMA PERIPHERAL [None]
  - RENAL IMPAIRMENT [None]
  - TRANSFUSION REACTION [None]
